FAERS Safety Report 16785354 (Version 1)
Quarter: 2019Q3

REPORT INFORMATION
  Report Type: Spontaneous
  Country: JP (occurrence: JP)
  Receive Date: 20190909
  Receipt Date: 20190909
  Transmission Date: 20191005
  Serious: Yes (Hospitalization)
  Sender: FDA-Public Use
  Company Number: JP-GLAXOSMITHKLINE-JP2019JPN131977

PATIENT
  Age: 4 Year
  Sex: Female

DRUGS (2)
  1. LAMICTAL [Suspect]
     Active Substance: LAMOTRIGINE
     Indication: EPILEPSY
     Dosage: UNK UNK, 1D
     Route: 050
  2. LAMICTAL [Suspect]
     Active Substance: LAMOTRIGINE
     Dosage: 40 MG, BID
     Route: 050

REACTIONS (3)
  - Hospitalisation [Unknown]
  - Product use issue [Unknown]
  - Off label use [Unknown]
